FAERS Safety Report 16823564 (Version 1)
Quarter: 2019Q3

REPORT INFORMATION
  Report Type: Spontaneous
  Country: US (occurrence: US)
  Receive Date: 20190918
  Receipt Date: 20190918
  Transmission Date: 20191005
  Serious: Yes (Other)
  Sender: FDA-Public Use
  Company Number: US-ASTELLAS-2019US036637

PATIENT
  Age: 81 Year
  Sex: Male

DRUGS (2)
  1. TIZANIDINE. [Concomitant]
     Active Substance: TIZANIDINE
     Indication: HYPOTONIA
     Route: 065
  2. MYRBETRIQ [Suspect]
     Active Substance: MIRABEGRON
     Indication: PRODUCT USED FOR UNKNOWN INDICATION
     Route: 065
     Dates: start: 20190905, end: 20190909

REACTIONS (2)
  - Blood pressure decreased [Unknown]
  - Gait disturbance [Unknown]

NARRATIVE: CASE EVENT DATE: 201909
